FAERS Safety Report 20885776 (Version 1)
Quarter: 2022Q2

REPORT INFORMATION
  Report Type: Spontaneous
  Country: CH (occurrence: CH)
  Receive Date: 20220527
  Receipt Date: 20220527
  Transmission Date: 20220721
  Serious: Yes (Other)
  Sender: FDA-Public Use
  Company Number: None

PATIENT
  Age: 74 Year
  Sex: Male
  Weight: 97 kg

DRUGS (3)
  1. SULFAMETHOXAZOLE\TRIMETHOPRIM [Suspect]
     Active Substance: SULFAMETHOXAZOLE\TRIMETHOPRIM
     Indication: Urinary tract infection
     Dosage: 1DF, DURATION 1DAYS
     Route: 048
     Dates: start: 20220407, end: 20220408
  2. OMEPRAZOL-MEPHA [Concomitant]
     Dosage: 20 MILLIGRAM DAILY; 20MG, FREQUENCY TIME 1DAYS
     Route: 048
     Dates: start: 2000
  3. EXFORGE [Concomitant]
     Active Substance: AMLODIPINE BESYLATE\VALSARTAN
     Dosage: 1 DOSAGE FORMS DAILY; 1DF,AMLODIPINE BESILATE: 5MG; VALSARTAN: 160MG
     Route: 048
     Dates: start: 2015

REACTIONS (1)
  - Dermatitis bullous [Recovering/Resolving]

NARRATIVE: CASE EVENT DATE: 20220408
